FAERS Safety Report 8052397-1 (Version None)
Quarter: 2012Q1

REPORT INFORMATION
  Report Type: 
  Country: None (occurrence: None)
  Receive Date: 20120118
  Receipt Date: 20120113
  Transmission Date: 20120608
  Serious: No
  Sender: FDA-Public Use
  Company Number: US-B.I. PHARMACEUTICALS,INC./RIDGEFIELD-2012-BP-00833BP

PATIENT
  Sex: Male

DRUGS (4)
  1. ESOMEPRAZOLE SODIUM [Concomitant]
     Indication: GASTROOESOPHAGEAL REFLUX DISEASE
  2. PRADAXA [Suspect]
     Indication: CEREBROVASCULAR ACCIDENT PROPHYLAXIS
     Dosage: 150 MG
     Route: 048
     Dates: start: 20111201
  3. PREDNISONE TAB [Concomitant]
     Indication: ARTHRITIS
     Dosage: 10 MG
     Route: 048
  4. CARVEDILOL [Concomitant]
     Indication: HYPERTENSION

REACTIONS (3)
  - VISION BLURRED [None]
  - VISUAL IMPAIRMENT [None]
  - MYALGIA [None]
